FAERS Safety Report 4287635-4 (Version None)
Quarter: 2004Q1

REPORT INFORMATION
  Report Type: 
  Country: None (occurrence: None)
  Receive Date: 20040209
  Receipt Date: 20030813
  Transmission Date: 20041129
  Serious: No
  Sender: FDA-Public Use
  Company Number: US-GLAXOSMITHKLINE-A0420795A

PATIENT
  Age: 56 Year
  Sex: Male
  Weight: 96.4 kg

DRUGS (3)
  1. PAXIL CR [Suspect]
  2. NORVASC [Concomitant]
  3. DYAZIDE [Concomitant]

REACTIONS (1)
  - BLOOD THYROID STIMULATING HORMONE INCREASED [None]
